FAERS Safety Report 10302057 (Version 2)
Quarter: 2014Q3

REPORT INFORMATION
  Report Type: Spontaneous
  Country: IT (occurrence: None)
  Receive Date: 20140709
  Receipt Date: 20140714
  Transmission Date: 20150326
  Serious: Yes (Hospitalization)
  Sender: FDA-Public Use
  Company Number: IT2014K2483SPO

PATIENT
  Age: 73 Year
  Sex: Male

DRUGS (11)
  1. ALLOPURINOL. [Suspect]
     Active Substance: ALLOPURINOL
     Indication: TUMOUR LYSIS SYNDROME
     Route: 048
     Dates: start: 20121228, end: 20130502
  2. FILGRASTIM [Suspect]
     Active Substance: FILGRASTIM
     Dosage: 1 DAY.
  3. CEFTRIAXONE DISODIUM [Concomitant]
     Active Substance: CEFTRIAXONE
  4. ACYCLOVIR. [Concomitant]
     Active Substance: ACYCLOVIR
  5. LANSOPRAZOLE (LANSOPRAZOLE) UNKNOWN [Suspect]
     Active Substance: LANSOPRAZOLE
     Indication: PRODUCT USED FOR UNKNOWN INDICATION
  6. FLUCONAZOLE. [Suspect]
     Active Substance: FLUCONAZOLE
     Indication: FEBRILE NEUTROPENIA
     Route: 048
     Dates: end: 20130505
  7. LEVOFLOXACIN HEMIHYDRATE [Suspect]
     Active Substance: LEVOFLOXACIN
     Indication: PYREXIA
     Route: 048
     Dates: start: 20130308, end: 20130322
  8. PREDNISONE. [Suspect]
     Active Substance: PREDNISONE
     Indication: PRODUCT USED FOR UNKNOWN INDICATION
     Dosage: 1 DAY.
  9. RITUXIMAB [Concomitant]
     Active Substance: RITUXIMAB
  10. HEPARIN SODIUM. [Concomitant]
     Active Substance: HEPARIN SODIUM
  11. OMEPRAZOLE. [Concomitant]
     Active Substance: OMEPRAZOLE

REACTIONS (2)
  - Pulmonary embolism [None]
  - Febrile neutropenia [None]

NARRATIVE: CASE EVENT DATE: 20130323
